FAERS Safety Report 14648150 (Version 1)
Quarter: 2018Q1

REPORT INFORMATION
  Report Type: Spontaneous
  Country: US (occurrence: US)
  Receive Date: 20180316
  Receipt Date: 20180316
  Transmission Date: 20180509
  Serious: Yes (Death)
  Sender: FDA-Public Use
  Company Number: US-PFIZER INC-2018111462

PATIENT
  Age: 50 Year
  Sex: Female

DRUGS (2)
  1. BESPONSA [Suspect]
     Active Substance: INOTUZUMAB OZOGAMICIN
     Dosage: 0.8 MG/M2, CYCLIC (SECOND CYCLE)
  2. BESPONSA [Suspect]
     Active Substance: INOTUZUMAB OZOGAMICIN
     Indication: ACUTE LEUKAEMIA
     Dosage: 1.8 MG/M2, CYCLIC (ON DAYS 1, 8, AND 15 FOR THE FIRST CYCLE)

REACTIONS (1)
  - Death [Fatal]
